FAERS Safety Report 11745874 (Version 10)
Quarter: 2017Q2

REPORT INFORMATION
  Report Type: Spontaneous
  Country: US (occurrence: US)
  Receive Date: 20151117
  Receipt Date: 20170417
  Transmission Date: 20170829
  Serious: Yes (Congenital Anomaly, Other)
  Sender: FDA-Public Use
  Company Number: PHEH2015US023623

PATIENT
  Sex: Male

DRUGS (2)
  1. ONDANSETRON [Suspect]
     Active Substance: ONDANSETRON
     Indication: FOETAL EXPOSURE DURING PREGNANCY
     Dosage: MOTHER^S DOSE: 4 MG, UNK
     Route: 064
  2. ZOFRAN ODT [Suspect]
     Active Substance: ONDANSETRON HYDROCHLORIDE
     Indication: FOETAL EXPOSURE DURING PREGNANCY
     Dosage: MOTHER^S DOSE: 4 MG, (Q6H), 4MG UNK
     Route: 064

REACTIONS (41)
  - Congenital anomaly [Unknown]
  - Heart disease congenital [Unknown]
  - Right-to-left cardiac shunt [Unknown]
  - Hand-foot-and-mouth disease [Unknown]
  - Upper respiratory tract infection [Unknown]
  - Rash neonatal [Unknown]
  - Diarrhoea neonatal [Unknown]
  - Cardiomegaly [Unknown]
  - Selective eating disorder [Unknown]
  - Atrial septal defect [Unknown]
  - Foetal exposure during pregnancy [Unknown]
  - Seborrhoea [Unknown]
  - Abdominal pain upper [Unknown]
  - Right ventricular hypertrophy [Unknown]
  - Heart block congenital [Unknown]
  - Respiratory syncytial virus bronchiolitis [Unknown]
  - Injury [Unknown]
  - Anhedonia [Unknown]
  - Nasal congestion [Unknown]
  - Sneezing [Unknown]
  - Pulmonary valve incompetence [Unknown]
  - Cardiac murmur [Unknown]
  - Polydipsia [Unknown]
  - Pharyngitis streptococcal [Unknown]
  - Ear pain [Unknown]
  - Rhinorrhoea [Unknown]
  - Pulmonary artery stenosis congenital [Unknown]
  - Neonatal respiratory distress syndrome [Unknown]
  - Acne [Unknown]
  - Impetigo [Unknown]
  - Abdominal pain [Unknown]
  - Cough [Unknown]
  - Bronchiolitis [Unknown]
  - Anxiety [Unknown]
  - Constipation [Unknown]
  - Emotional distress [Unknown]
  - Pain [Unknown]
  - Dermatitis diaper [Unknown]
  - Ingrowing nail [Unknown]
  - Otitis media acute [Unknown]
  - Pyrexia [Unknown]
